FAERS Safety Report 5151175-0 (Version None)
Quarter: 2006Q4

REPORT INFORMATION
  Report Type: 
  Country: None (occurrence: None)
  Receive Date: 20061113
  Receipt Date: 20061113
  Transmission Date: 20070319
  Serious: Yes (Life-Threatening, Hospitalization)
  Sender: FDA-Public Use
  Company Number: None

PATIENT
  Age: 58 Year
  Sex: Female
  Weight: 58.9676 kg

DRUGS (6)
  1. ABILIFY [Suspect]
     Dosage: 15 MG QD
     Dates: start: 20060901
  2. TOPAMAX [Suspect]
     Dosage: 100 MG Q AM  200 MG Q HS
     Dates: start: 20010401
  3. PREMARIN [Concomitant]
  4. LEVOTHYROXINE SODIUM [Concomitant]
  5. IMITREX [Concomitant]
  6. ZELNORM [Concomitant]

REACTIONS (1)
  - BLOOD POTASSIUM DECREASED [None]
